FAERS Safety Report 4929509-9 (Version None)
Quarter: 2006Q1

REPORT INFORMATION
  Report Type: 
  Country: None (occurrence: None)
  Receive Date: 20060127
  Receipt Date: 20051115
  Transmission Date: 20060701
  Serious: Yes (Other)
  Sender: FDA-Public Use
  Company Number: 2005154917

PATIENT
  Age: 79 Year
  Sex: Male
  Weight: 81.6475 kg

DRUGS (7)
  1. LYRICA [Suspect]
     Indication: PERIPHERAL NERVE INJURY
     Dosage: 75 MG (75 MG, 1 IN 1 D), ORAL
     Route: 048
     Dates: start: 20051109, end: 20051109
  2. PERCOCET [Concomitant]
  3. VITAMINS [Concomitant]
  4. FOSINOPRIL [Concomitant]
  5. ALL OTHER THERAPEUTIC PRODUCTS [Concomitant]
  6. TRAZODONE HCL [Concomitant]
  7. ACETYLSALICYLIC ACID SRT [Concomitant]

REACTIONS (2)
  - DYSARTHRIA [None]
  - OEDEMA PERIPHERAL [None]
